FAERS Safety Report 25715323 (Version 1)
Quarter: 2025Q3

REPORT INFORMATION
  Report Type: Spontaneous
  Country: EG (occurrence: EG)
  Receive Date: 20250822
  Receipt Date: 20250822
  Transmission Date: 20251021
  Serious: Yes (Hospitalization)
  Sender: SANOFI AVENTIS
  Company Number: EG-SA-2025SA248777

PATIENT
  Age: 45 Year
  Sex: Female

DRUGS (2)
  1. LANTUS [Suspect]
     Active Substance: INSULIN GLARGINE
     Dosage: 20 INTERNATIONAL UNIT ,AT EVENING
     Route: 058
     Dates: start: 2010
  2. APIDRA [Suspect]
     Active Substance: INSULIN GLULISINE
     Dosage: 25.25.20 INTERNATIONAL UNIT WITH MEALS
     Route: 058
     Dates: start: 2010

REACTIONS (1)
  - Anaemia [Recovering/Resolving]

NARRATIVE: CASE EVENT DATE: 20250619
